FAERS Safety Report 19761159 (Version 1)
Quarter: 2021Q3

REPORT INFORMATION
  Report Type: Spontaneous
  Country: US (occurrence: US)
  Receive Date: 20210830
  Receipt Date: 20210830
  Transmission Date: 20211014
  Serious: Yes (Other)
  Sender: FDA-Public Use
  Company Number: US-STRIDES ARCOLAB LIMITED-2021SP026927

PATIENT
  Age: 77 Year
  Sex: Male

DRUGS (10)
  1. DOXORUBICIN [Suspect]
     Active Substance: DOXORUBICIN
     Indication: ADULT T-CELL LYMPHOMA/LEUKAEMIA
     Dosage: UNK, IN A 21?DAY CYCLE
     Route: 065
  2. PREDNISOLONE. [Suspect]
     Active Substance: PREDNISOLONE
     Indication: ADULT T-CELL LYMPHOMA/LEUKAEMIA
     Dosage: 100 MILLIGRAM FOR 5 DAYS IN A 21?DAY CYCLE
     Route: 065
  3. CYCLOPHOSPHAMIDE. [Suspect]
     Active Substance: CYCLOPHOSPHAMIDE
     Indication: ADULT T-CELL LYMPHOMA/LEUKAEMIA
     Dosage: 750 MILLIGRAM/SQ. METER IN A 21?DAY CYCLE
     Route: 065
  4. FINASTERIDE. [Concomitant]
     Active Substance: FINASTERIDE
     Indication: PRODUCT USED FOR UNKNOWN INDICATION
     Dosage: 5 MILLIGRAM PER DAY
     Route: 065
  5. ZIDOVUDINE. [Concomitant]
     Active Substance: ZIDOVUDINE
     Indication: HUMAN T-CELL LYMPHOTROPIC VIRUS TYPE I INFECTION
     Dosage: 250  MILLIGRAM
     Route: 065
  6. PRAVASTATIN. [Concomitant]
     Active Substance: PRAVASTATIN
     Indication: PRODUCT USED FOR UNKNOWN INDICATION
     Dosage: 40 MILLIGRAM, PER DAY
     Route: 065
  7. VINCRISTINE [Suspect]
     Active Substance: VINCRISTINE
     Indication: ADULT T-CELL LYMPHOMA/LEUKAEMIA
     Dosage: 1 MILLIGRAM IN A 21?DAY CYCLE
     Route: 065
  8. LEVOTHYROXINE. [Concomitant]
     Active Substance: LEVOTHYROXINE
     Indication: PRODUCT USED FOR UNKNOWN INDICATION
     Dosage: 75 MILLIGRAM PER DAY
     Route: 065
  9. VINCRISTINE [Suspect]
     Active Substance: VINCRISTINE
     Dosage: UNK, DOSE REDUCED FOR HYPERBILIRUBINAEMIA
     Route: 065
  10. DOXAZOSIN [Concomitant]
     Active Substance: DOXAZOSIN MESYLATE
     Indication: PRODUCT USED FOR UNKNOWN INDICATION
     Dosage: 4 MILLIGRAM, PER DAY
     Route: 065

REACTIONS (4)
  - Hyperbilirubinaemia [Recovered/Resolved]
  - Anaemia [Recovered/Resolved]
  - Myelosuppression [Recovered/Resolved]
  - Off label use [Unknown]
